FAERS Safety Report 10436087 (Version 1)
Quarter: 2014Q3

REPORT INFORMATION
  Report Type: Spontaneous
  Country: US (occurrence: US)
  Receive Date: 20140908
  Receipt Date: 20140908
  Transmission Date: 20150326
  Serious: No
  Sender: FDA-Public Use
  Company Number: US-JNJFOC-20140811381

PATIENT
  Age: 40 Year
  Sex: Female
  Weight: 86.18 kg

DRUGS (4)
  1. TOPIRAMATE. [Concomitant]
     Active Substance: TOPIRAMATE
     Indication: BIPOLAR II DISORDER
     Route: 065
     Dates: start: 2008
  2. INVEGA [Suspect]
     Active Substance: PALIPERIDONE
     Indication: BIPOLAR II DISORDER
     Route: 048
     Dates: start: 2008
  3. IXABEPILONE [Concomitant]
     Active Substance: IXABEPILONE
     Indication: BIPOLAR II DISORDER
     Route: 065
     Dates: start: 2008
  4. OMEPRAZOLE. [Concomitant]
     Active Substance: OMEPRAZOLE
     Indication: DYSPEPSIA
     Route: 065
     Dates: start: 2010

REACTIONS (1)
  - Drug dose omission [Unknown]

NARRATIVE: CASE EVENT DATE: 20140810
